FAERS Safety Report 20198849 (Version 1)
Quarter: 2021Q4

REPORT INFORMATION
  Report Type: Report from Study
  Country: US (occurrence: US)
  Receive Date: 20211217
  Receipt Date: 20211217
  Transmission Date: 20220303
  Serious: No
  Sender: FDA-Public Use
  Company Number: US-BEH-2021134398

PATIENT
  Age: 51 Year
  Sex: Female

DRUGS (3)
  1. HIZENTRA [Suspect]
     Active Substance: HUMAN IMMUNOGLOBULIN G
     Indication: Primary immunodeficiency syndrome
     Dosage: 8 GRAM, QW
     Route: 058
     Dates: start: 20210709
  2. HIZENTRA [Suspect]
     Active Substance: HUMAN IMMUNOGLOBULIN G
     Indication: Blood immunoglobulin G decreased
     Dosage: UNK
     Route: 058
     Dates: start: 20210725, end: 20210725
  3. HIZENTRA [Suspect]
     Active Substance: HUMAN IMMUNOGLOBULIN G
     Dosage: UNK, QW
     Route: 058
     Dates: end: 20210807

REACTIONS (7)
  - Headache [Unknown]
  - Unevaluable event [Unknown]
  - Migraine [Unknown]
  - No adverse event [Unknown]
  - Off label use [Unknown]
  - Legal problem [Unknown]
  - Insurance issue [Unknown]

NARRATIVE: CASE EVENT DATE: 20210709
